FAERS Safety Report 20025906 (Version 1)
Quarter: 2021Q4

REPORT INFORMATION
  Report Type: Report from Study
  Country: US (occurrence: US)
  Receive Date: 20211102
  Receipt Date: 20211102
  Transmission Date: 20220303
  Serious: Yes (Death)
  Sender: FDA-Public Use
  Company Number: US-MYLANLABS-2021M1079854

PATIENT
  Age: 18 Year
  Sex: Female

DRUGS (2)
  1. NALOXONE [Suspect]
     Active Substance: NALOXONE
     Indication: Toxicity to various agents
     Dosage: UNK
     Route: 065
  2. NALMEFENE [Suspect]
     Active Substance: NALMEFENE
     Indication: Toxicity to various agents
     Dosage: UNK
     Route: 065

REACTIONS (1)
  - Drug ineffective [Fatal]
